FAERS Safety Report 7767104-7 (Version None)
Quarter: 2011Q3

REPORT INFORMATION
  Report Type: 
  Country: None (occurrence: None)
  Receive Date: 20110922
  Receipt Date: 20101014
  Transmission Date: 20111222
  Serious: No
  Sender: FDA-Public Use
  Company Number: US-ASTRAZENECA-2010SE48681

PATIENT
  Age: 70 Year
  Sex: Female
  Weight: 99.8 kg

DRUGS (1)
  1. SEROQUEL XR [Suspect]
     Indication: SLEEP DISORDER
     Route: 048
     Dates: start: 20100101

REACTIONS (3)
  - UPPER RESPIRATORY TRACT INFECTION [None]
  - COUGH [None]
  - PULMONARY CONGESTION [None]
